FAERS Safety Report 10091524 (Version 3)
Quarter: 2015Q3

REPORT INFORMATION
  Report Type: Spontaneous
  Country: US (occurrence: US)
  Receive Date: 20140421
  Receipt Date: 20150813
  Transmission Date: 20151125
  Serious: No
  Sender: FDA-Public Use
  Company Number: US-GILEAD-2013-0068332

PATIENT
  Age: 77 Year
  Sex: Female

DRUGS (1)
  1. LETAIRIS [Suspect]
     Active Substance: AMBRISENTAN
     Indication: CARDIAC VALVE DISEASE
     Dosage: 5 MG, QD
     Dates: start: 20121128, end: 20121220

REACTIONS (5)
  - Dyspnoea [Unknown]
  - Nervousness [Unknown]
  - Palpitations [Unknown]
  - Fluid retention [Unknown]
  - Fatigue [Unknown]

NARRATIVE: CASE EVENT DATE: 20121219
